FAERS Safety Report 23876053 (Version 1)
Quarter: 2024Q2

REPORT INFORMATION
  Report Type: Spontaneous
  Country: TR (occurrence: TR)
  Receive Date: 20240520
  Receipt Date: 20240520
  Transmission Date: 20240716
  Serious: Yes (Life-Threatening, Hospitalization, Other)
  Sender: FDA-Public Use
  Company Number: TR-009507513-2405TUR005370

PATIENT
  Age: 24 Year
  Sex: Female

DRUGS (1)
  1. PEMBROLIZUMAB [Suspect]
     Active Substance: PEMBROLIZUMAB
     Indication: Alveolar soft part sarcoma metastatic
     Dosage: 200 MILLIGRAM, EVERY THREE WEEKS
     Route: 042
     Dates: start: 202301

REACTIONS (3)
  - Pulmonary arterial hypertension [Unknown]
  - Cardiac failure [Unknown]
  - Product use in unapproved indication [Unknown]

NARRATIVE: CASE EVENT DATE: 20230101
